FAERS Safety Report 8326340-1 (Version None)
Quarter: 2012Q2

REPORT INFORMATION
  Report Type: 
  Country: None (occurrence: None)
  Receive Date: 20120501
  Receipt Date: 20120420
  Transmission Date: 20120825
  Serious: Yes (Hospitalization, Other)
  Sender: FDA-Public Use
  Company Number: US-ACTELION-A-US2012-59325

PATIENT

DRUGS (3)
  1. COUMADIN [Concomitant]
  2. SILDENAFIL [Concomitant]
  3. TRACLEER [Suspect]
     Indication: PULMONARY ARTERIAL HYPERTENSION
     Dosage: UNK
     Route: 048
     Dates: start: 20080819

REACTIONS (4)
  - JOINT EFFUSION [None]
  - HIP ARTHROPLASTY [None]
  - POST PROCEDURAL INFECTION [None]
  - JOINT FLUID DRAINAGE [None]
